FAERS Safety Report 4653323-5 (Version None)
Quarter: 2005Q2

REPORT INFORMATION
  Report Type: 
  Country: None (occurrence: None)
  Receive Date: 20050505
  Receipt Date: 20041011
  Transmission Date: 20051028
  Serious: Yes (Hospitalization)
  Sender: FDA-Public Use
  Company Number: 200413989FR

PATIENT
  Age: 53 Year
  Sex: Male
  Weight: 64 kg

DRUGS (3)
  1. TRIATEC [Suspect]
     Route: 048
     Dates: start: 20040401
  2. LASILIX [Suspect]
     Route: 048
     Dates: start: 20040401, end: 20040503
  3. CODE UNBROKEN [Concomitant]

REACTIONS (4)
  - BLOOD CREATININE INCREASED [None]
  - HAEMATURIA [None]
  - POST PROCEDURAL COMPLICATION [None]
  - RENAL IMPAIRMENT [None]
